FAERS Safety Report 8961150 (Version 1)
Quarter: 2012Q4

REPORT INFORMATION
  Report Type: 
  Country: US (occurrence: US)
  Receive Date: 20121213
  Receipt Date: 20121213
  Transmission Date: 20130627
  Serious: No
  Sender: FDA-Public Use
  Company Number: US-ALLERGAN-1214337US

PATIENT
  Age: 47 Year
  Sex: Male

DRUGS (4)
  1. LUMIGAN� 0.01% [Suspect]
     Indication: INCREASED INTRAOCULAR PRESSURE
     Dosage: 1 Gtt, UNK
     Route: 047
     Dates: start: 20121013, end: 20121014
  2. ATROPINE CARE [Concomitant]
     Indication: DRUG USE FOR UNKNOWN INDICATION
  3. ALPHAGAN� P [Concomitant]
     Indication: DRUG USE FOR UNKNOWN INDICATION
     Dosage: UNK UNK, bid
  4. INSULIN [Concomitant]
     Indication: DRUG USE FOR UNKNOWN INDICATION

REACTIONS (7)
  - Visual acuity reduced [Unknown]
  - Eye movement disorder [Unknown]
  - Discomfort [Unknown]
  - Vision blurred [Unknown]
  - Headache [Recovering/Resolving]
  - Ocular hyperaemia [Unknown]
  - Eye irritation [Unknown]
